FAERS Safety Report 17516084 (Version 1)
Quarter: 2020Q1

REPORT INFORMATION
  Report Type: Spontaneous
  Country: US (occurrence: US)
  Receive Date: 20200227
  Receipt Date: 20200227
  Transmission Date: 20200409
  Serious: Yes (Hospitalization)
  Sender: FDA-Public Use
  Company Number: None

PATIENT
  Age: 70 Year
  Sex: Female

DRUGS (9)
  1. ASPIRIN. [Concomitant]
     Active Substance: ASPIRIN
  2. RENAL VITAMIN [Concomitant]
  3. LASIX [Concomitant]
     Active Substance: FUROSEMIDE
  4. NIASPAN [Concomitant]
     Active Substance: NIACIN
  5. MYCOPHENOLIC 360MG [Suspect]
     Active Substance: MYCOPHENOLIC ACID
     Indication: RENAL TRANSPLANT
     Route: 048
     Dates: start: 20161222
  6. TACROLIMUS 1MG [Suspect]
     Active Substance: TACROLIMUS
     Indication: RENAL TRANSPLANT
     Dates: start: 20180917
  7. TYLENOL [Concomitant]
     Active Substance: ACETAMINOPHEN
  8. GLIPIZIDE. [Concomitant]
     Active Substance: GLIPIZIDE
  9. PRAVASTATIN. [Concomitant]
     Active Substance: PRAVASTATIN

REACTIONS (1)
  - Influenza [None]

NARRATIVE: CASE EVENT DATE: 20200126
